APPROVED DRUG PRODUCT: TRIFLUOPERAZINE HYDROCHLORIDE
Active Ingredient: TRIFLUOPERAZINE HYDROCHLORIDE
Strength: EQ 5MG BASE
Dosage Form/Route: TABLET;ORAL
Application: A088969 | Product #001
Applicant: DURAMED PHARMACEUTICALS INC SUB BARR LABORATORIES INC
Approved: Apr 23, 1985 | RLD: No | RS: No | Type: DISCN